FAERS Safety Report 9045995 (Version 2)
Quarter: 2014Q1

REPORT INFORMATION
  Report Type: Spontaneous
  Country: US (occurrence: US)
  Receive Date: 20130201
  Receipt Date: 20140124
  Transmission Date: 20141002
  Serious: Yes (Hospitalization, Other)
  Sender: FDA-Public Use
  Company Number: US-BIOGENIDEC-2013BI008143

PATIENT
  Age: 0 Day
  Sex: Female

DRUGS (2)
  1. AVONEX [Suspect]
     Indication: MATERNAL EXPOSURE TIMING UNSPECIFIED
     Route: 064
     Dates: start: 19991001, end: 200109
  2. DEPAKOTE [Concomitant]
     Indication: FOETAL EXPOSURE TIMING UNSPECIFIED
     Route: 064

REACTIONS (9)
  - Low birth weight baby [Recovered/Resolved]
  - Lung disorder [Recovered/Resolved]
  - Asthma [Not Recovered/Not Resolved]
  - Attention deficit/hyperactivity disorder [Not Recovered/Not Resolved]
  - Cardiac perforation [Recovered/Resolved]
  - Aortic stenosis [Recovered/Resolved]
  - Thyroid disorder [Unknown]
  - Foetal heart rate deceleration abnormality [Recovered/Resolved]
  - Cardiac failure congestive [Recovered/Resolved]
